FAERS Safety Report 18992008 (Version 1)
Quarter: 2021Q1

REPORT INFORMATION
  Report Type: Spontaneous
  Country: US (occurrence: US)
  Receive Date: 20210310
  Receipt Date: 20210310
  Transmission Date: 20210420
  Serious: No
  Sender: FDA-Public Use
  Company Number: None

PATIENT
  Age: 60 Year
  Sex: Male

DRUGS (2)
  1. RITUXIMAB (RITUXIMAB 10MG/ML INJ, VIL,10ML) [Suspect]
     Active Substance: RITUXIMAB
     Indication: LYMPHOMA
     Dosage: ?          OTHER FREQUENCY:OTHER;OTHER ROUTE:IV?
     Route: 042
     Dates: start: 20201213, end: 20201227
  2. METHOTREXATE (METHOTREXATE NA 100MG/VIL INJ) [Suspect]
     Active Substance: METHOTREXATE SODIUM
     Indication: LYMPHOMA
     Dosage: ?          OTHER FREQUENCY:OTHER;OTHER ROUTE:IV?
     Route: 042
     Dates: start: 20201211, end: 20201225

REACTIONS (5)
  - Drug intolerance [None]
  - Pseudomonal bacteraemia [None]
  - Pneumonia pseudomonal [None]
  - Scedosporium infection [None]
  - Immunosuppression [None]

NARRATIVE: CASE EVENT DATE: 20210128
